FAERS Safety Report 4794496-3 (Version None)
Quarter: 2005Q4

REPORT INFORMATION
  Report Type: 
  Country: None (occurrence: None)
  Receive Date: 20051011
  Receipt Date: 20050929
  Transmission Date: 20060501
  Serious: Yes (Death)
  Sender: FDA-Public Use
  Company Number: FR-BRISTOL-MYERS SQUIBB COMPANY-13127428

PATIENT
  Sex: Female

DRUGS (4)
  1. ABILIFY [Suspect]
     Indication: PARANOIA
     Route: 048
  2. ABILIFY [Suspect]
     Indication: DELUSION
     Route: 048
  3. ABILIFY [Suspect]
     Indication: DEPRESSION
     Route: 048
  4. TERCIAN [Concomitant]

REACTIONS (1)
  - COMPLETED SUICIDE [None]
